FAERS Safety Report 15917356 (Version 2)
Quarter: 2019Q2

REPORT INFORMATION
  Report Type: Spontaneous
  Country: JP (occurrence: JP)
  Receive Date: 20190205
  Receipt Date: 20190409
  Transmission Date: 20190711
  Serious: Yes (Hospitalization, Other)
  Sender: FDA-Public Use
  Company Number: JP-009507513-1812JPN002400J

PATIENT
  Age: 62 Year
  Sex: Male
  Weight: 60 kg

DRUGS (12)
  1. KEYTRUDA [Suspect]
     Active Substance: PEMBROLIZUMAB
     Dosage: 200 MILLIGRAM, Q3W
     Route: 041
     Dates: start: 20190109, end: 20190109
  2. CODEINE PHOSPHATE HYDRATE [Concomitant]
     Active Substance: CODEINE PHOSPHATE
     Indication: COUGH
     Dosage: 1 GRAM, TID
     Route: 048
     Dates: start: 20180524, end: 20180717
  3. TRANEXAMIC ACID. [Concomitant]
     Active Substance: TRANEXAMIC ACID
     Indication: HAEMOPTYSIS
     Dosage: 250 MILLIGRAM, TID
     Route: 048
     Dates: start: 20170928, end: 20180717
  4. CYTOTEC [Concomitant]
     Active Substance: MISOPROSTOL
     Indication: GASTRIC DISORDER
     Dosage: 200 MILLIGRAM, TID
     Route: 048
     Dates: start: 20180606, end: 20180717
  5. CARBOCISTEINE [Concomitant]
     Active Substance: CARBOCYSTEINE
     Indication: PRODUCTIVE COUGH
     Dosage: 500 MILLIGRAM, TID
     Route: 048
     Dates: start: 20170928
  6. LOXOPROFEN [Concomitant]
     Active Substance: LOXOPROFEN
     Indication: ANALGESIC THERAPY
     Dosage: 60 MILLIGRAM, TID
     Route: 048
     Dates: start: 20180606, end: 20180612
  7. KEYTRUDA [Suspect]
     Active Substance: PEMBROLIZUMAB
     Indication: NON-SMALL CELL LUNG CANCER
     Dosage: 200 MILLIGRAM, Q3W
     Route: 041
     Dates: start: 20180605, end: 2018
  8. NAIXAN [Concomitant]
     Active Substance: NAPROXEN SODIUM
     Indication: ANALGESIC THERAPY
     Dosage: 100 MILLIGRAM, TID
     Route: 048
     Dates: start: 20180613, end: 20180717
  9. BAYASPIRIN [Concomitant]
     Active Substance: ASPIRIN
     Indication: ARTERIAL ANGIOPLASTY
     Dosage: 100 MILLIGRAM, QD
     Route: 048
     Dates: start: 20171025
  10. ULTIBRO [Concomitant]
     Active Substance: GLYCOPYRRONIUM\INDACATEROL
     Indication: CHRONIC OBSTRUCTIVE PULMONARY DISEASE
     Dosage: UNK
     Dates: start: 20170929
  11. CARBAZOCHROME SULFONATE NA [Concomitant]
     Indication: HAEMOPTYSIS
     Dosage: 30 MILLIGRAM, TID
     Route: 048
     Dates: start: 20170928, end: 20180717
  12. HUSTAZOL [CLOPERASTINE HYDROCHLORIDE] [Concomitant]
     Active Substance: CLOPERASTINE HYDROCHLORIDE
     Indication: COUGH
     Dosage: 20 MILLIGRAM, TID
     Route: 048
     Dates: start: 20170928, end: 20181030

REACTIONS (2)
  - Myositis [Recovered/Resolved]
  - Adrenal insufficiency [Recovered/Resolved]

NARRATIVE: CASE EVENT DATE: 20181211
